FAERS Safety Report 15188495 (Version 2)
Quarter: 2019Q2

REPORT INFORMATION
  Report Type: Report from Study
  Country: CA (occurrence: CA)
  Receive Date: 20180724
  Receipt Date: 20190612
  Transmission Date: 20190711
  Serious: Yes (Hospitalization, Other)
  Sender: FDA-Public Use
  Company Number: CA-AMGEN-CANSL2018098805

PATIENT
  Age: 77 Year
  Sex: Female

DRUGS (13)
  1. DULOXETINE. [Concomitant]
     Active Substance: DULOXETINE
  2. FUROSEMIDE. [Concomitant]
     Active Substance: FUROSEMIDE
  3. SENOKOT [Concomitant]
     Active Substance: SENNOSIDES
  4. ROSUVASTATIN. [Concomitant]
     Active Substance: ROSUVASTATIN
  5. SPIRONOLACTONE. [Concomitant]
     Active Substance: SPIRONOLACTONE
  6. PERINDOPRIL [Concomitant]
     Active Substance: PERINDOPRIL
  7. PANTOPRAZOLE [Concomitant]
     Active Substance: PANTOPRAZOLE
  8. PROLIA [Suspect]
     Active Substance: DENOSUMAB
     Indication: OSTEOPOROSIS POSTMENOPAUSAL
     Dosage: 60 MILLIGRAM, Q6MO
     Route: 065
  9. INFLECTRA [Concomitant]
     Active Substance: INFLIXIMAB-DYYB
  10. METOPROLOL. [Concomitant]
     Active Substance: METOPROLOL
  11. CLOPIDOGREL [Concomitant]
     Active Substance: CLOPIDOGREL BISULFATE
  12. METHOTREXATE. [Concomitant]
     Active Substance: METHOTREXATE
  13. FOLIC ACID. [Concomitant]
     Active Substance: FOLIC ACID

REACTIONS (5)
  - Spinal disorder [Unknown]
  - Eating disorder [Unknown]
  - Peripheral swelling [Unknown]
  - Myocardial infarction [Unknown]
  - Weight decreased [Unknown]

NARRATIVE: CASE EVENT DATE: 20181231
